FAERS Safety Report 10986215 (Version 1)
Quarter: 2015Q2

REPORT INFORMATION
  Report Type: Spontaneous
  Country: US (occurrence: None)
  Receive Date: 20150403
  Receipt Date: 20150403
  Transmission Date: 20150821
  Serious: No
  Sender: FDA-Public Use
  Company Number: None

PATIENT
  Age: 73 Year
  Sex: Female
  Weight: 40.82 kg

DRUGS (3)
  1. COLACE [Concomitant]
     Active Substance: DOCUSATE SODIUM
  2. RYTARY [Suspect]
     Active Substance: CARBIDOPA\LEVODOPA
     Indication: DRUG THERAPY
     Dosage: 2 CAPSULES, 6 X PER DAY, TAKEN BY MOUTH
     Route: 048
     Dates: start: 20150323, end: 20150327
  3. CABIDOPA/LEVODOPA 25/ 100 [Concomitant]

REACTIONS (9)
  - Oral discomfort [None]
  - Dyskinesia [None]
  - Drug ineffective [None]
  - Screaming [None]
  - Feeling abnormal [None]
  - Skin disorder [None]
  - Psychotic disorder [None]
  - Throat irritation [None]
  - Product formulation issue [None]

NARRATIVE: CASE EVENT DATE: 20150324
